FAERS Safety Report 6085757-9 (Version None)
Quarter: 2009Q1

REPORT INFORMATION
  Report Type: 
  Country: None (occurrence: None)
  Receive Date: 20090217
  Receipt Date: 20090217
  Transmission Date: 20090719
  Serious: Yes (Disabling)
  Sender: FDA-Public Use
  Company Number: None

PATIENT
  Age: 61 Year
  Sex: Male
  Weight: 88.4514 kg

DRUGS (1)
  1. DILANTIN KAPSEAL [Suspect]
     Indication: EPILEPSY
     Dosage: 4 A DAY 2 TIMES A DAY IV
     Route: 042

REACTIONS (3)
  - DIZZINESS [None]
  - NERVOUSNESS [None]
  - PRODUCT QUALITY ISSUE [None]
